FAERS Safety Report 11842090 (Version 1)
Quarter: 2015Q4

REPORT INFORMATION
  Report Type: Spontaneous
  Country: US (occurrence: US)
  Receive Date: 20151216
  Receipt Date: 20151216
  Transmission Date: 20160305
  Serious: No
  Sender: FDA-Public Use
  Company Number: US-BAUSCH-BL-2015-027575

PATIENT
  Age: 68 Year
  Sex: Male
  Weight: 88.53 kg

DRUGS (2)
  1. JUBLIA [Suspect]
     Active Substance: EFINACONAZOLE
     Indication: FUNGAL INFECTION
     Dosage: APPLY ONCE DAILY TO THE BIG TOE OF RIGHT FOOT
     Route: 061
     Dates: start: 201411
  2. LEVOTHROID [Concomitant]
     Active Substance: LEVOTHYROXINE SODIUM
     Indication: HYPOTHYROIDISM

REACTIONS (1)
  - Drug ineffective [Not Recovered/Not Resolved]
